FAERS Safety Report 11116608 (Version 2)
Quarter: 2016Q1

REPORT INFORMATION
  Report Type: Spontaneous
  Country: US (occurrence: US)
  Receive Date: 20150515
  Receipt Date: 20160302
  Transmission Date: 20160525
  Serious: No
  Sender: FDA-Public Use
  Company Number: US-RB-076989-15

PATIENT
  Age: 11 Year
  Sex: Female

DRUGS (3)
  1. NON RB PRODUCT [Suspect]
     Active Substance: UNSPECIFIED INGREDIENT
     Indication: PRODUCT USED FOR UNKNOWN INDICATION
     Dosage: . PATIENT WAS GIVEN 1 TIME ON 03-MAY-2015 AT 12PM AND 1 TIME ON 04-MAY-2015 AT 6:00AM,FREQUENCY UNK
     Route: 065
     Dates: start: 20150503
  2. CHILDRENS MUCINEX MINI-MELTS COUGH [Suspect]
     Active Substance: DEXTROMETHORPHAN HYDROBROMIDE\GUAIFENESIN
     Indication: PRODUCT USED FOR UNKNOWN INDICATION
     Dosage: 200MG. ,BID
     Route: 065
     Dates: start: 20150503
  3. CHILDRENS MUCINEX MINI-MELTS COUGH [Suspect]
     Active Substance: DEXTROMETHORPHAN HYDROBROMIDE\GUAIFENESIN
     Dosage: 200MG. ,FREQUENCY UNK
     Route: 065
     Dates: start: 20150504

REACTIONS (1)
  - Epistaxis [Recovered/Resolved]

NARRATIVE: CASE EVENT DATE: 20150503
